FAERS Safety Report 21017723 (Version 1)
Quarter: 2022Q2

REPORT INFORMATION
  Report Type: Spontaneous
  Country: FR (occurrence: FR)
  Receive Date: 20220628
  Receipt Date: 20220628
  Transmission Date: 20220721
  Serious: Yes (Hospitalization, Other)
  Sender: FDA-Public Use
  Company Number: FR-ADVANZ PHARMA-202206003782

PATIENT

DRUGS (14)
  1. ALFUZOSIN [Suspect]
     Active Substance: ALFUZOSIN
     Indication: Benign prostatic hyperplasia
     Dosage: 2.5 MG, QD (XATRAL COATED TABLET)
     Route: 048
     Dates: start: 20210519, end: 20220329
  2. HEPARIN CALCIUM [Suspect]
     Active Substance: HEPARIN CALCIUM
     Indication: Pulmonary embolism
     Dosage: UNK
     Route: 058
     Dates: start: 20220316, end: 20220330
  3. APIXABAN [Suspect]
     Active Substance: APIXABAN
     Indication: Pulmonary embolism
     Dosage: 10 MG, QD
     Route: 048
     Dates: start: 20211129, end: 20220316
  4. RAMIPRIL [Suspect]
     Active Substance: RAMIPRIL
     Indication: Hypertension
     Dosage: 5 MG, QD (SCORED TABLET)
     Route: 048
     Dates: start: 2017, end: 20220315
  5. CLOPIDOGREL [Suspect]
     Active Substance: CLOPIDOGREL BISULFATE
     Indication: Ischaemic cardiomyopathy
     Dosage: 75 MG, QD
     Route: 048
     Dates: start: 2017, end: 20220316
  6. EZETIMIBE [Suspect]
     Active Substance: EZETIMIBE
     Indication: Ischaemic cardiomyopathy
     Dosage: 10 MG, QD
     Route: 048
     Dates: start: 20210519, end: 20220320
  7. BISOPROLOL FUMARATE [Suspect]
     Active Substance: BISOPROLOL FUMARATE
     Indication: Hypertension
     Dosage: 10 MG, QD (SCORED TABLET)
     Route: 048
     Dates: start: 20210519, end: 20220315
  8. CEFUROXIME [Suspect]
     Active Substance: CEFUROXIME
     Indication: Bronchitis
     Dosage: 500 MG, QD
     Route: 042
     Dates: start: 20220222, end: 20220301
  9. BETAMETHASONE [Suspect]
     Active Substance: BETAMETHASONE
     Dosage: UNK
     Route: 065
     Dates: start: 2021
  10. DEXTROMETHORPHAN [Suspect]
     Active Substance: DEXTROMETHORPHAN
     Dosage: UNK
     Route: 065
     Dates: start: 2021
  11. SPIKEVAX [Suspect]
     Active Substance: ELASOMERAN
     Indication: COVID-19 immunisation
     Dosage: 1 DOSAGE FORM (1 TOTAL MODERNA)
     Route: 030
     Dates: start: 20211230
  12. PIPERACILLIN SODIUM\TAZOBACTAM SODIUM [Suspect]
     Active Substance: PIPERACILLIN SODIUM\TAZOBACTAM SODIUM
     Indication: Septic shock
     Dosage: 16 G, QD
     Route: 042
     Dates: start: 20220324, end: 20220408
  13. ROSUVASTATIN [Concomitant]
     Active Substance: ROSUVASTATIN
     Dosage: UNK
     Dates: start: 2021
  14. LANSOPRAZOLE [Concomitant]
     Active Substance: LANSOPRAZOLE
     Dosage: UNK
     Dates: start: 2021

REACTIONS (2)
  - Acquired haemophilia [Recovering/Resolving]
  - Product use in unapproved indication [Unknown]

NARRATIVE: CASE EVENT DATE: 20220330
